FAERS Safety Report 12720309 (Version 1)
Quarter: 2016Q3

REPORT INFORMATION
  Report Type: Spontaneous
  Country: CN (occurrence: CN)
  Receive Date: 20160907
  Receipt Date: 20160907
  Transmission Date: 20161109
  Serious: Yes (Death, Other)
  Sender: FDA-Public Use
  Company Number: CN-GLAXOSMITHKLINE-CN2016GSK128992

PATIENT
  Age: 56 Year
  Sex: Male

DRUGS (7)
  1. CISPLATIN. [Suspect]
     Active Substance: CISPLATIN
     Indication: CHEMOTHERAPY
     Dosage: WITH ETOPOSIDE FOR 1 CYCLE, CYC
     Dates: start: 201409
  2. ETOPOSIDE. [Suspect]
     Active Substance: ETOPOSIDE
     Dosage: WITH CISPLATIN FOR 2 CYCLES
     Dates: start: 201502
  3. ETOPOSIDE. [Suspect]
     Active Substance: ETOPOSIDE
     Dosage: WITH CISPLATIN FOR 1 CYCLES
     Dates: start: 201409
  4. ETOPOSIDE. [Suspect]
     Active Substance: ETOPOSIDE
     Indication: CHEMOTHERAPY
     Dosage: WITH CARBOPLATIN FOR 3 CYCLES
     Dates: start: 201409
  5. CARBOPLATIN. [Suspect]
     Active Substance: CARBOPLATIN
     Indication: CHEMOTHERAPY
     Dosage: WITH ETOPOSIDE FOR 3 CYCLES, CYC
     Dates: start: 201409
  6. LAMIVUDINE. [Suspect]
     Active Substance: LAMIVUDINE
     Indication: HEPATITIS B
     Dosage: 100 MG, QD
     Dates: start: 201409, end: 2015
  7. CISPLATIN. [Suspect]
     Active Substance: CISPLATIN
     Dosage: WITH ETOPOSIDE FOR 2 CYCLE, CYC
     Dates: start: 201502

REACTIONS (18)
  - Hypoalbuminaemia [Unknown]
  - Neoplasm progression [Unknown]
  - Hepatitis B DNA increased [Unknown]
  - Hepatitis B [Fatal]
  - Bone marrow failure [Fatal]
  - Aspartate aminotransferase increased [Unknown]
  - Blood bilirubin increased [Unknown]
  - Pancreatitis acute [Fatal]
  - Hyperammonaemia [Unknown]
  - Condition aggravated [Unknown]
  - Drug resistance [Unknown]
  - Haemoptysis [Fatal]
  - Hepatorenal syndrome [Unknown]
  - Pathogen resistance [Unknown]
  - Viral mutation identified [Unknown]
  - Alanine aminotransferase increased [Unknown]
  - Hepatitis fulminant [Unknown]
  - Hepatic encephalopathy [Unknown]
